FAERS Safety Report 4462490-8 (Version None)
Quarter: 2004Q3

REPORT INFORMATION
  Report Type: 
  Country: None (occurrence: None)
  Receive Date: 20040928
  Receipt Date: 20040915
  Transmission Date: 20050211
  Serious: Yes (Life-Threatening, Hospitalization)
  Sender: FDA-Public Use
  Company Number: 2004066327

PATIENT
  Age: 44 Year
  Sex: Male
  Weight: 63 kg

DRUGS (8)
  1. VIRACEPT [Suspect]
     Indication: HIV INFECTION
     Dosage: 2250 MG (1 D), ORAL
     Route: 048
     Dates: start: 20020101
  2. ISONIAZID [Suspect]
     Indication: PROPHYLAXIS
     Dosage: 300 MG (1 D), ORAL
     Route: 048
     Dates: start: 20040503, end: 20040713
  3. ZIDOVUDINE W/LAMIVUDINE (LAMIVUDINE, ZIDOVUDINE) [Suspect]
     Indication: HIV INFECTION
     Dosage: 900 MG (1D), ORAL
     Route: 048
     Dates: start: 20040101
  4. MINOXIDIL [Concomitant]
  5. CALCIUM CARBONATE (CALCIUM CARBONATE) [Concomitant]
  6. FOLIC ACID [Concomitant]
  7. CYANOCOBALAMIN/NICOTINAMIDE/PYRIDOXINE/RIBOFLAVIN/THIAMINE(CYANOCOBALA [Concomitant]
  8. CALCIUM PANTOTHENATE (CALCIUM PANTOTHENATE) [Concomitant]

REACTIONS (4)
  - DRUG INTERACTION [None]
  - HEPATOTOXICITY [None]
  - MENTAL DISORDER [None]
  - PSYCHOMOTOR AGITATION [None]
